FAERS Safety Report 9882777 (Version 1)
Quarter: 2014Q1

REPORT INFORMATION
  Report Type: Spontaneous
  Country: GB (occurrence: GB)
  Receive Date: 20140207
  Receipt Date: 20140207
  Transmission Date: 20141002
  Serious: Yes (Other)
  Sender: FDA-Public Use
  Company Number: GB-ABBVIE-14P-167-1198590-00

PATIENT
  Age: 80 Year
  Sex: Male

DRUGS (2)
  1. SODIUM VALPROATE [Suspect]
     Indication: AFFECTIVE DISORDER
     Route: 048
     Dates: start: 201103, end: 201308
  2. CITALOPRAM [Concomitant]
     Indication: PRODUCT USED FOR UNKNOWN INDICATION

REACTIONS (2)
  - Furuncle [Recovered/Resolved]
  - Pain [Unknown]
